FAERS Safety Report 11533523 (Version 1)
Quarter: 2015Q3

REPORT INFORMATION
  Report Type: Report from Study
  Country: KR (occurrence: KR)
  Receive Date: 20150921
  Receipt Date: 20150921
  Transmission Date: 20151125
  Serious: No
  Sender: FDA-Public Use
  Company Number: PHHY2015KR113314

PATIENT
  Age: 45 Year
  Sex: Female

DRUGS (10)
  1. TASIGNA [Suspect]
     Active Substance: NILOTINIB
     Dosage: 600 MG, QD
     Route: 048
     Dates: start: 20140207, end: 20140313
  2. VENITOL [Concomitant]
     Indication: HAEMORRHOIDS
     Dosage: 2000 MG, UNK
     Route: 048
     Dates: start: 20131227, end: 20140102
  3. ULTRACET [Concomitant]
     Active Substance: ACETAMINOPHEN\TRAMADOL HYDROCHLORIDE
     Indication: HAEMORRHOIDS
     Dosage: 2 DF, UNK
     Route: 048
     Dates: start: 20140103, end: 20140109
  4. TASIGNA [Suspect]
     Active Substance: NILOTINIB
     Indication: CHRONIC MYELOID LEUKAEMIA
     Dosage: 600 MG, QD
     Route: 048
     Dates: start: 20131220, end: 20131226
  5. LACTICARE HC                       /02298001/ [Concomitant]
     Indication: RASH
     Dosage: 1 DF,  (1 BT) UNK
     Route: 061
     Dates: start: 20140124, end: 20140206
  6. TASIGNA [Suspect]
     Active Substance: NILOTINIB
     Dosage: 600 MG, QD
     Route: 048
     Dates: start: 20140117, end: 20140123
  7. SYLCON [Concomitant]
     Indication: HAEMORRHOIDS
     Dosage: 2500 MG, UNK
     Route: 048
     Dates: start: 20131227, end: 20140109
  8. ADIPAM [Concomitant]
     Indication: RASH
     Dosage: 60 MG, UNK
     Route: 048
     Dates: start: 20140124, end: 20140206
  9. KETRO [Concomitant]
     Indication: HAEMORRHOIDS
     Dosage: 40 MG, UNK
     Route: 048
     Dates: start: 20131227, end: 20131229
  10. RAMNOS [Concomitant]
     Indication: HAEMORRHOIDS
     Dosage: 1000 MG, UNK
     Route: 048
     Dates: start: 20131227, end: 20140109

REACTIONS (2)
  - Arthralgia [Recovered/Resolved]
  - Myalgia [Recovered/Resolved]

NARRATIVE: CASE EVENT DATE: 20140227
